FAERS Safety Report 25964346 (Version 1)
Quarter: 2025Q4

REPORT INFORMATION
  Report Type: Spontaneous
  Country: US (occurrence: None)
  Receive Date: 20251027
  Receipt Date: 20251027
  Transmission Date: 20260118
  Serious: Yes (Disabling)
  Sender: FDA-CTU
  Company Number: None

PATIENT
  Age: 61 Year
  Sex: Female
  Weight: 58.5 kg

DRUGS (7)
  1. ROSUVASTATIN [Suspect]
     Active Substance: ROSUVASTATIN
     Indication: Blood cholesterol increased
     Dates: start: 20241101, end: 20250405
  2. IBRANCE [Concomitant]
     Active Substance: PALBOCICLIB
  3. SYNTHROID [Concomitant]
     Active Substance: LEVOTHYROXINE SODIUM
  4. Letrezole [Concomitant]
  5. Venlaflexine [Concomitant]
  6. XGEVA [Concomitant]
     Active Substance: DENOSUMAB
  7. Vitamin D3 with K [Concomitant]

REACTIONS (7)
  - Neck pain [None]
  - Bruxism [None]
  - Pain in extremity [None]
  - Impaired work ability [None]
  - Somnolence [None]
  - Fatigue [None]
  - Polymyalgia rheumatica [None]

NARRATIVE: CASE EVENT DATE: 20250101
